FAERS Safety Report 16046268 (Version 1)
Quarter: 2019Q1

REPORT INFORMATION
  Report Type: Spontaneous
  Country: US (occurrence: US)
  Receive Date: 20190307
  Receipt Date: 20190307
  Transmission Date: 20190418
  Serious: No
  Sender: FDA-Public Use
  Company Number: US-GLAXOSMITHKLINE-US2019036683

PATIENT

DRUGS (1)
  1. FLONASE ALLERGY RELIEF [Suspect]
     Active Substance: FLUTICASONE PROPIONATE
     Indication: EUSTACHIAN TUBE DISORDER
     Dosage: UNK

REACTIONS (2)
  - Off label use [Unknown]
  - Product use in unapproved indication [Unknown]
